FAERS Safety Report 7097028-2 (Version None)
Quarter: 2010Q4

REPORT INFORMATION
  Report Type: 
  Country: None (occurrence: None)
  Receive Date: 20101111
  Receipt Date: 20101102
  Transmission Date: 20110411
  Serious: Yes (Other)
  Sender: FDA-Public Use
  Company Number: CN-JNJFOC-20101101870

PATIENT
  Age: 58 Year
  Sex: Male

DRUGS (1)
  1. IMODIUM [Suspect]
     Indication: DIARRHOEA
     Route: 048

REACTIONS (2)
  - ANAESTHESIA [None]
  - SOMNOLENCE [None]
